FAERS Safety Report 12327368 (Version 2)
Quarter: 2016Q2

REPORT INFORMATION
  Report Type: Spontaneous
  Country: CN (occurrence: CN)
  Receive Date: 20160503
  Receipt Date: 20160512
  Transmission Date: 20160815
  Serious: Yes (Hospitalization, Other)
  Sender: FDA-Public Use
  Company Number: CN-ELI_LILLY_AND_COMPANY-CN201604008421

PATIENT
  Sex: Male

DRUGS (5)
  1. HUMULIN 70/30 [Suspect]
     Active Substance: INSULIN HUMAN
     Dosage: 11 U, EACH EVENING
     Route: 058
     Dates: start: 20060801
  2. CAPTOPRIL. [Concomitant]
     Active Substance: CAPTOPRIL
     Indication: PRODUCT USED FOR UNKNOWN INDICATION
     Dosage: UNK, UNKNOWN
     Route: 065
  3. NIFEDIPINE. [Concomitant]
     Active Substance: NIFEDIPINE
     Indication: PRODUCT USED FOR UNKNOWN INDICATION
     Dosage: UNK, UNKNOWN
     Route: 065
  4. GINKO BILOBA [Concomitant]
     Active Substance: GINKGO
     Indication: PRODUCT USED FOR UNKNOWN INDICATION
     Dosage: UNK, UNKNOWN
     Route: 065
  5. HUMULIN 70/30 [Suspect]
     Active Substance: INSULIN HUMAN
     Indication: DIABETES MELLITUS
     Dosage: 15 U, EACH MORNING
     Route: 058
     Dates: start: 20060801

REACTIONS (1)
  - Myocardial ischaemia [Unknown]
